FAERS Safety Report 9058612 (Version 2)
Quarter: 2014Q1

REPORT INFORMATION
  Report Type: Spontaneous
  Country: US (occurrence: US)
  Receive Date: 20130211
  Receipt Date: 20140314
  Transmission Date: 20141002
  Serious: Yes (Death, Hospitalization, Other)
  Sender: FDA-Public Use
  Company Number: PHHY2013US012442

PATIENT
  Age: 70 Year
  Sex: Female

DRUGS (12)
  1. VORICONAZOLE [Suspect]
  2. MYCOPHENOLATE MOFETIL [Suspect]
     Indication: IMMUNOSUPPRESSION
  3. METHYLPREDNISOLONE [Suspect]
     Indication: IMMUNOSUPPRESSION
  4. TACROLIMUS [Suspect]
     Indication: IMMUNOSUPPRESSION
  5. PREDNISONE [Suspect]
     Indication: IMMUNOSUPPRESSION
  6. TERBINAFINE [Suspect]
  7. BASILIXIMAB [Suspect]
     Indication: IMMUNOSUPPRESSION
  8. CASPOFUNGIN [Suspect]
  9. VALGANCICLOVIR [Concomitant]
     Indication: INFECTION PROPHYLAXIS
     Dosage: 900 MG, UNK
  10. DAPSONE [Concomitant]
     Indication: INFECTION PROPHYLAXIS
     Dosage: 50 MG, QW3
  11. SULFAMETHOXAZOL W/TRIMETOPRIM [Concomitant]
     Dosage: 10 MG/KG, IN TWO DIVIDED DOSES DAILY
  12. MINOCYCLINE [Concomitant]
     Dosage: 100 MG, BID

REACTIONS (14)
  - Death [Fatal]
  - Scedosporium infection [Unknown]
  - Dyspnoea exertional [Recovered/Resolved]
  - Mycotic aneurysm [Unknown]
  - Dyspnoea [Recovered/Resolved]
  - Pericarditis infective [Unknown]
  - Pericarditis constrictive [Recovering/Resolving]
  - Pulmonary mass [Recovering/Resolving]
  - Pericardial effusion [Recovering/Resolving]
  - Fungal infection [Unknown]
  - Aspergillus infection [Unknown]
  - Pathogen resistance [Unknown]
  - Lung transplant rejection [Unknown]
  - Drug ineffective [Unknown]
